FAERS Safety Report 4692952-X (Version None)
Quarter: 2005Q2

REPORT INFORMATION
  Report Type: 
  Country: None (occurrence: None)
  Receive Date: 20050615
  Receipt Date: 20050609
  Transmission Date: 20051028
  Serious: Yes (Hospitalization, Disabling)
  Sender: FDA-Public Use
  Company Number: 002#4#2005-00182

PATIENT
  Age: 47 Year
  Sex: Male

DRUGS (1)
  1. CHLORPHENIRAMINE MALEATE AND PHENYLPROPANOLAMINE HCL [Suspect]
     Indication: INFLUENZA
     Dosage: ORAL
     Route: 048

REACTIONS (1)
  - ISCHAEMIC STROKE [None]
